FAERS Safety Report 13003679 (Version 1)
Quarter: 2016Q4

REPORT INFORMATION
  Report Type: Spontaneous
  Country: US (occurrence: US)
  Receive Date: 20161206
  Receipt Date: 20161206
  Transmission Date: 20170207
  Serious: Yes (Other)
  Sender: FDA-Public Use
  Company Number: US-ASTRAZENECA-2016SF26868

PATIENT
  Sex: Female

DRUGS (4)
  1. IBRANCE [Suspect]
     Active Substance: PALBOCICLIB
     Indication: HUMAN EPIDERMAL GROWTH FACTOR RECEPTOR NEGATIVE
     Dosage: 75 MG EVERY OTHER DAY
     Route: 048
  2. ARIMIDEX [Suspect]
     Active Substance: ANASTROZOLE
     Indication: BREAST CANCER FEMALE
     Route: 048
     Dates: start: 201612
  3. IBRANCE [Suspect]
     Active Substance: PALBOCICLIB
     Indication: HUMAN EPIDERMAL GROWTH FACTOR RECEPTOR NEGATIVE
     Route: 048
  4. TAMOXIFEN [Suspect]
     Active Substance: TAMOXIFEN
     Indication: BREAST CANCER FEMALE
     Route: 048

REACTIONS (3)
  - Malignant neoplasm progression [Unknown]
  - Cytopenia [Recovering/Resolving]
  - Breast cancer metastatic [None]
